FAERS Safety Report 12756304 (Version 8)
Quarter: 2018Q1

REPORT INFORMATION
  Report Type: Spontaneous
  Country: US (occurrence: US)
  Receive Date: 20160916
  Receipt Date: 20180113
  Transmission Date: 20180508
  Serious: Yes (Life-Threatening, Hospitalization, Other)
  Sender: FDA-Public Use
  Company Number: US-ASTRAZENECA-2016SE96323

PATIENT
  Age: 38 Year
  Sex: Female
  Weight: 77.1 kg

DRUGS (35)
  1. FARXIGA [Suspect]
     Active Substance: DAPAGLIFLOZIN PROPANEDIOL
     Indication: TYPE 2 DIABETES MELLITUS
     Route: 048
     Dates: start: 20140724
  2. METFORMIN [Concomitant]
     Active Substance: METFORMIN HYDROCHLORIDE
     Dates: start: 1995, end: 2008
  3. LISINOPRIL. [Concomitant]
     Active Substance: LISINOPRIL
     Dosage: 20.0MG UNKNOWN
     Dates: start: 20121013
  4. SEROQUEL [Concomitant]
     Active Substance: QUETIAPINE FUMARATE
     Route: 048
     Dates: start: 20170105
  5. TOUJEO/SOLOSTAR [Concomitant]
     Dosage: INJECT 80 UNITS TWICE A DAY
  6. IBUPROFEN. [Concomitant]
     Active Substance: IBUPROFEN
     Indication: PAIN
     Dates: start: 2014
  7. LEVEMIR [Concomitant]
     Active Substance: INSULIN DETEMIR
     Indication: DIABETES MELLITUS
     Dosage: 100 UNIT TWICE DAILY
     Dates: start: 2010
  8. LOVENOX [Concomitant]
     Active Substance: ENOXAPARIN SODIUM
  9. DILTIAZEM. [Concomitant]
     Active Substance: DILTIAZEM
  10. DIFLUCAN [Concomitant]
     Active Substance: FLUCONAZOLE
     Route: 048
     Dates: start: 20150804
  11. TRAMADOL. [Concomitant]
     Active Substance: TRAMADOL
  12. CELEBREX [Concomitant]
     Active Substance: CELECOXIB
     Indication: ANALGESIC INTERVENTION SUPPORTIVE THERAPY
  13. AMOXICILLIN. [Concomitant]
     Active Substance: AMOXICILLIN
     Dates: start: 20170214
  14. GEMFIBROZIL. [Concomitant]
     Active Substance: GEMFIBROZIL
  15. PERCOCET [Concomitant]
     Active Substance: ACETAMINOPHEN\OXYCODONE HYDROCHLORIDE
     Route: 048
     Dates: start: 20170105
  16. VICTOZA [Concomitant]
     Active Substance: LIRAGLUTIDE
     Dosage: 3-PAK 0.6 MG/0.1 ML (18 MG/3 ML)
     Route: 058
     Dates: start: 20140205, end: 20140428
  17. LEVAQUIN [Concomitant]
     Active Substance: LEVOFLOXACIN
     Route: 048
     Dates: start: 20150211
  18. PHENERGAN [Concomitant]
     Active Substance: PROMETHAZINE HYDROCHLORIDE
     Route: 048
     Dates: start: 20150211
  19. FARXIGA [Suspect]
     Active Substance: DAPAGLIFLOZIN PROPANEDIOL
     Indication: TYPE 2 DIABETES MELLITUS
     Route: 048
     Dates: start: 20140727, end: 201409
  20. KLOR-CON [Concomitant]
     Active Substance: POTASSIUM CHLORIDE
     Indication: DIABETES MELLITUS
     Dates: start: 1996
  21. LASIX [Concomitant]
     Active Substance: FUROSEMIDE
     Dosage: 40.0MG UNKNOWN
     Dates: start: 2014
  22. SERTRALINE HYDROCHLORIDE. [Concomitant]
     Active Substance: SERTRALINE HYDROCHLORIDE
     Route: 048
     Dates: start: 20150604
  23. NEURONTIN [Concomitant]
     Active Substance: GABAPENTIN
     Route: 048
     Dates: start: 20170105
  24. LIPITOR [Concomitant]
     Active Substance: ATORVASTATIN CALCIUM
     Indication: BLOOD CHOLESTEROL INCREASED
     Route: 048
  25. LYRICA [Concomitant]
     Active Substance: PREGABALIN
     Route: 048
     Dates: start: 20150604
  26. MOBIC [Concomitant]
     Active Substance: MELOXICAM
     Route: 048
     Dates: start: 20140428
  27. PHENAZOPYRIDINE. [Concomitant]
     Active Substance: PHENAZOPYRIDINE
     Route: 048
     Dates: start: 20160120
  28. CYMBALTA [Concomitant]
     Active Substance: DULOXETINE HYDROCHLORIDE
     Indication: DEPRESSION
     Dates: start: 2014
  29. JANUMET [Concomitant]
     Active Substance: METFORMIN HYDROCHLORIDE\SITAGLIPTIN PHOSPHATE
     Indication: DIABETES MELLITUS
     Dates: start: 2010
  30. MOBIC [Concomitant]
     Active Substance: MELOXICAM
     Route: 048
     Dates: start: 20170105
  31. INVOKANA [Suspect]
     Active Substance: CANAGLIFLOZIN
     Route: 065
  32. AMARYL [Concomitant]
     Active Substance: GLIMEPIRIDE
     Indication: DIABETES MELLITUS
     Dates: start: 2014
  33. LASIX [Concomitant]
     Active Substance: FUROSEMIDE
     Dosage: 40.0MG UNKNOWN
     Dates: start: 20120830
  34. VISTARIL [Concomitant]
     Active Substance: HYDROXYZINE PAMOATE
  35. PROTONIX [Concomitant]
     Active Substance: PANTOPRAZOLE SODIUM
     Route: 048
     Dates: start: 20150211

REACTIONS (11)
  - Diabetic ketoacidosis [Recovered/Resolved]
  - Cerebrovascular accident [Unknown]
  - Diabetic coma [Unknown]
  - Acute kidney injury [Unknown]
  - Diabetic neuropathy [Unknown]
  - Pancreatitis relapsing [Recovered/Resolved]
  - Hypertensive nephropathy [Unknown]
  - Pancreatic pseudocyst [Unknown]
  - Pancreatitis necrotising [Unknown]
  - Renal failure [Unknown]
  - Chronic kidney disease [Unknown]

NARRATIVE: CASE EVENT DATE: 2014
